FAERS Safety Report 18923468 (Version 1)
Quarter: 2021Q1

REPORT INFORMATION
  Report Type: Spontaneous
  Country: CN (occurrence: CN)
  Receive Date: 20210222
  Receipt Date: 20210222
  Transmission Date: 20210420
  Serious: Yes (Hospitalization, Other)
  Sender: FDA-Public Use
  Company Number: CN-BAXTER-2021BAX003227

PATIENT
  Age: 21 Year
  Sex: Male
  Weight: 75 kg

DRUGS (11)
  1. MERCAPTOPURINE. [Suspect]
     Active Substance: MERCAPTOPURINE
     Indication: ACUTE LYMPHOCYTIC LEUKAEMIA
     Dosage: TABLET?CAM REGIMEN
     Route: 065
     Dates: start: 20210126, end: 20210206
  2. CYTOSAR [Suspect]
     Active Substance: CYTARABINE
     Indication: ACUTE LYMPHOCYTIC LEUKAEMIA
     Dosage: CAM REGIMEN?DAY 1 TO DAY 7
     Route: 041
     Dates: start: 20210126, end: 20210201
  3. DAUNORUBICIN [Suspect]
     Active Substance: DAUNORUBICIN
     Indication: PRODUCT USED FOR UNKNOWN INDICATION
     Dosage: PRIOR DRUG
     Route: 065
  4. DEXAMETHASONE. [Suspect]
     Active Substance: DEXAMETHASONE
     Indication: PRODUCT USED FOR UNKNOWN INDICATION
     Dosage: PRIOR DRUG
     Route: 065
  5. ENDOXAN [Suspect]
     Active Substance: CYCLOPHOSPHAMIDE
     Indication: ACUTE LYMPHOCYTIC LEUKAEMIA
     Dosage: CAM CHEMOTHERAPY?DAY 1
     Route: 041
     Dates: start: 20210126, end: 20210126
  6. UROMITEXAN [Suspect]
     Active Substance: MESNA
     Dosage: 0, 4 AND 8 HOURS AFTER ENDOXAN
     Route: 065
     Dates: start: 20210202, end: 20210202
  7. RECOMBINANT HUMAN GRANULOCYTE STIMULATING FACTOR [Concomitant]
     Indication: PROPHYLAXIS
     Route: 040
     Dates: start: 20210202, end: 20210208
  8. ENDOXAN [Suspect]
     Active Substance: CYCLOPHOSPHAMIDE
     Indication: PRODUCT USED FOR UNKNOWN INDICATION
     Dosage: PRIOR REGIMEN
     Route: 065
  9. VINCRISTINE [Suspect]
     Active Substance: VINCRISTINE
     Indication: PRODUCT USED FOR UNKNOWN INDICATION
     Dosage: PRIOR DRUG
     Route: 065
  10. UROMITEXAN [Suspect]
     Active Substance: MESNA
     Indication: PRODUCT USED FOR UNKNOWN INDICATION
     Dosage: 0, 4 AND 8 HOURS AFTER ENDOXAN
     Route: 065
     Dates: start: 20210126, end: 20210126
  11. ENDOXAN [Suspect]
     Active Substance: CYCLOPHOSPHAMIDE
     Dosage: CAM CHEMOTHERAPY?DAY 8
     Route: 041
     Dates: start: 20210202, end: 20210202

REACTIONS (2)
  - Platelet count decreased [Not Recovered/Not Resolved]
  - Myelosuppression [Unknown]

NARRATIVE: CASE EVENT DATE: 20210205
